FAERS Safety Report 4948613-2 (Version None)
Quarter: 2006Q1

REPORT INFORMATION
  Report Type: 
  Country: None (occurrence: None)
  Receive Date: 20060313
  Receipt Date: 20060227
  Transmission Date: 20060701
  Serious: Yes (Other)
  Sender: FDA-Public Use
  Company Number: 2006029935

PATIENT
  Age: 58 Year
  Sex: Male

DRUGS (9)
  1. DIFLUCAN [Suspect]
     Indication: FUNGAL PERITONITIS
     Dosage: 100 MG, ORAL; 200 MG, INTRAVENOUS
     Route: 048
     Dates: start: 20051101, end: 20051101
  2. DIFLUCAN [Suspect]
     Indication: FUNGAL PERITONITIS
     Dosage: 100 MG, ORAL; 200 MG, INTRAVENOUS
     Route: 048
     Dates: start: 20051101, end: 20051111
  3. PRODIF (FOSFLUCONAZOLE) [Suspect]
     Indication: FUNGAL PERITONITIS
     Dosage: 504.5 MG, INTRAVENOUS
     Route: 042
     Dates: start: 20051115, end: 20051121
  4. DIGOXIN [Suspect]
     Indication: ARRHYTHMIA
     Dosage: 0.25 MG, INTRAVENOUS
     Route: 042
     Dates: start: 20051121, end: 20051126
  5. OMEPRAZOLE [Suspect]
     Indication: ILL-DEFINED DISORDER
     Dosage: 20 MG, INTRAVENOUS
     Route: 042
     Dates: start: 20051101, end: 20051210
  6. MICAFUNGIN (MICAFUNGIN) [Suspect]
     Indication: FUNGAL PERITONITIS
     Dosage: 150 MG, INTRAVENOUS
     Route: 042
     Dates: start: 20051115, end: 20051221
  7. CEFAMEZIN (CEFAZOLIN SODIUM, LIDOCAINE HYDROCHLORIDE) [Suspect]
     Indication: ILL-DEFINED DISORDER
     Dosage: 1 GRAM, INTRAVENOUS
     Route: 042
     Dates: start: 20051014, end: 20051113
  8. CEFOPERAZONE SODIUM [Concomitant]
  9. FUNGIZONE [Concomitant]

REACTIONS (8)
  - ARRHYTHMIA [None]
  - CANDIDIASIS [None]
  - DEPRESSED LEVEL OF CONSCIOUSNESS [None]
  - FUNGAL PERITONITIS [None]
  - GASTROINTESTINAL HAEMORRHAGE [None]
  - MENTAL DISORDER DUE TO A GENERAL MEDICAL CONDITION [None]
  - RESTLESSNESS [None]
  - VOMITING [None]
